FAERS Safety Report 6534246-3 (Version None)
Quarter: 2009Q4

REPORT INFORMATION
  Report Type: 
  Country: None (occurrence: None)
  Receive Date: 20091214
  Receipt Date: 20061121
  Transmission Date: 20100525
  Serious: Yes (Other)
  Sender: FDA-Public Use
  Company Number: 472183

PATIENT
  Age: 53 Year
  Sex: Male

DRUGS (4)
  1. PEGYLATED INTERFERON NOS (PEGYLATED INTERFERON NOS) [Suspect]
     Indication: HEPATITIS C
     Dosage: 180 UG 1 PER 1 WEEK
  2. RIBAVIRIN [Suspect]
     Indication: HEPATITIS C
     Dosage: 400 MG 2 PER 1 DAY ORAL
     Route: 048
  3. OLANZAPINE [Concomitant]
  4. METHADONE HCL [Concomitant]

REACTIONS (6)
  - DECREASED APPETITE [None]
  - DRUG ABUSE [None]
  - FATIGUE [None]
  - IRRITABILITY [None]
  - PSYCHOTIC DISORDER [None]
  - WEIGHT DECREASED [None]
